FAERS Safety Report 7449665-0 (Version None)
Quarter: 2011Q2

REPORT INFORMATION
  Report Type: 
  Country: None (occurrence: None)
  Receive Date: 20110419
  Receipt Date: 20110404
  Transmission Date: 20111010
  Serious: Yes (Death, Other)
  Sender: FDA-Public Use
  Company Number: US-2011-10220

PATIENT
  Age: 48 Year
  Sex: Female

DRUGS (6)
  1. FLUDARABINE (FLUDARABINE PHOSPHATE) [Concomitant]
  2. PHENYTOIN [Concomitant]
  3. TACROLIMUS [Concomitant]
  4. BUSULFEX [Suspect]
     Indication: STEM CELL TRANSPLANT
  5. FILGRASTIM (FILGRASTIM) [Concomitant]
  6. METHOTREXATE [Concomitant]

REACTIONS (2)
  - ACUTE MYELOID LEUKAEMIA RECURRENT [None]
  - DISEASE PROGRESSION [None]
